FAERS Safety Report 8270421-8 (Version None)
Quarter: 2012Q2

REPORT INFORMATION
  Report Type: 
  Country: None (occurrence: None)
  Receive Date: 20120410
  Receipt Date: 20120327
  Transmission Date: 20120825
  Serious: Yes (Other)
  Sender: FDA-Public Use
  Company Number: PHEH2012US006473

PATIENT
  Sex: Female

DRUGS (3)
  1. THYROID MEDICINE [Concomitant]
  2. MIACALCIN [Suspect]
     Route: 045
  3. ATENOLOL [Concomitant]

REACTIONS (1)
  - FALL [None]
